FAERS Safety Report 7322473-7 (Version None)
Quarter: 2011Q1

REPORT INFORMATION
  Report Type: 
  Country: None (occurrence: None)
  Receive Date: 20110125
  Receipt Date: 20101108
  Transmission Date: 20110831
  Serious: No
  Sender: FDA-Public Use
  Company Number: US-004142

PATIENT
  Age: 70 Year
  Sex: Male
  Weight: 63.5036 kg

DRUGS (4)
  1. FIRMAGON [Suspect]
     Indication: PROSTATE CANCER
     Dosage: (80 MG 1X SUBCUTANEOUS)
     Route: 058
     Dates: start: 20101108
  2. BENICAR [Concomitant]
  3. TRAMADOL [Concomitant]
  4. ZOCOR [Concomitant]

REACTIONS (2)
  - WRONG TECHNIQUE IN DRUG USAGE PROCESS [None]
  - NO ADVERSE EVENT [None]
